FAERS Safety Report 8625519-9 (Version None)
Quarter: 2012Q3

REPORT INFORMATION
  Report Type: 
  Country: None (occurrence: None)
  Receive Date: 20120827
  Receipt Date: 20120817
  Transmission Date: 20120928
  Serious: Yes (Hospitalization)
  Sender: FDA-Public Use
  Company Number: UG-ABBOTT-12P-165-0969598-00

PATIENT
  Age: 43 Year
  Sex: Female

DRUGS (3)
  1. RALTEGRAVIR [Concomitant]
     Indication: HIV INFECTION
     Route: 048
     Dates: start: 20110427
  2. LOPINAVIR/RITONAVIR [Suspect]
     Indication: HIV INFECTION
     Route: 048
     Dates: start: 20110427
  3. SULFAMETHOXAZOLE TRIMETHOPRIM [Concomitant]
     Indication: HIV INFECTION
     Route: 048
     Dates: start: 20030715

REACTIONS (1)
  - SUBCUTANEOUS ABSCESS [None]
